FAERS Safety Report 15313094 (Version 1)
Quarter: 2018Q3

REPORT INFORMATION
  Report Type: Spontaneous
  Country: US (occurrence: US)
  Receive Date: 20180823
  Receipt Date: 20180823
  Transmission Date: 20181010
  Serious: Yes (Hospitalization)
  Sender: FDA-Public Use
  Company Number: US-OTSUKA-2018_027317

PATIENT
  Sex: Female

DRUGS (5)
  1. ABILIFY [Suspect]
     Active Substance: ARIPIPRAZOLE
     Dosage: 2 MG, QD
     Route: 065
     Dates: end: 20171108
  2. ABILIFY [Suspect]
     Active Substance: ARIPIPRAZOLE
     Dosage: UNK
     Route: 065
  3. ABILIFY [Suspect]
     Active Substance: ARIPIPRAZOLE
     Indication: ADJUVANT THERAPY
     Dosage: 15 MG, QD
     Route: 065
     Dates: start: 20120425
  4. ABILIFY [Suspect]
     Active Substance: ARIPIPRAZOLE
     Dosage: 10 MG, QD
     Route: 065
  5. ABILIFY [Suspect]
     Active Substance: ARIPIPRAZOLE
     Dosage: 5 MG, QD
     Route: 065

REACTIONS (13)
  - Divorced [Unknown]
  - Shoplifting [Recovered/Resolved]
  - Gambling disorder [Recovered/Resolved]
  - Hospitalisation [Unknown]
  - Product use in unapproved indication [Unknown]
  - Emotional distress [Unknown]
  - Compulsive shopping [Recovered/Resolved]
  - Mental disorder [Unknown]
  - Economic problem [Unknown]
  - Injury [Unknown]
  - Theft [Recovered/Resolved]
  - Compulsive hoarding [Recovered/Resolved]
  - Neuropsychiatric symptoms [Unknown]
